FAERS Safety Report 8825069 (Version 2)
Quarter: 2012Q4

REPORT INFORMATION
  Report Type: 
  Country: US (occurrence: US)
  Receive Date: 20121004
  Receipt Date: 20121126
  Transmission Date: 20130627
  Serious: Yes (Other)
  Sender: FDA-Public Use
  Company Number: PHEH2012US017818

PATIENT
  Age: 42 None
  Sex: Male
  Weight: 105.67 kg

DRUGS (16)
  1. GILENYA [Suspect]
     Indication: MULTIPLE SCLEROSIS
     Dosage: 0.5 mg, QD
     Route: 048
     Dates: start: 20120409
  2. NEXIUM [Concomitant]
     Dosage: 1 DF, PRN
     Dates: start: 20110906
  3. ASPIRIN [Concomitant]
     Dosage: 1 DF, QD
     Dates: start: 20110906
  4. CLONAZEPAM [Concomitant]
     Dosage: 0.5 mg, 3 Daily PRN
     Dates: start: 20110906
  5. ZOLPIDEM [Concomitant]
     Dosage: 1 DF, daily
     Dates: start: 20110527
  6. VITAMIN D [Concomitant]
     Dosage: 3 DF, daily
     Dates: start: 20110527
  7. VITAMIN B COMPLEX [Concomitant]
     Dosage: 1 DF, daily
     Dates: start: 20110527
  8. TOPIRAMATE [Concomitant]
     Dosage: 2 DF, daily
     Dates: start: 20110527
  9. PRAMIPEXOLE [Concomitant]
     Dosage: 1 DF, daily
     Dates: start: 20110527
  10. METFORMIN [Concomitant]
     Dosage: 3 DF, daily
     Dates: start: 20110527
  11. HIDROXYZIN [Concomitant]
     Dosage: 3 DF, daily
     Dates: start: 20110527
  12. HYDROCODONE [Concomitant]
     Dosage: 3 DF, daily
     Dates: start: 20110527
  13. BUPROPION [Concomitant]
     Dosage: 2 DF, daily
     Dates: start: 20110527
  14. LISINOPRIL [Concomitant]
     Dosage: 1 DF, daily
     Dates: start: 20100701
  15. FISH OIL [Concomitant]
     Dosage: 3 DF, daily
     Dates: start: 20100701
  16. SIMVASTATIN [Concomitant]
     Dosage: 1 DF, daily
     Dates: start: 20090116

REACTIONS (10)
  - Central nervous system lesion [Unknown]
  - Cognitive disorder [Recovered/Resolved]
  - Cold sweat [Recovered/Resolved]
  - Nausea [Recovered/Resolved]
  - Vomiting [Recovered/Resolved]
  - Somnolence [Recovered/Resolved]
  - Feeling abnormal [Unknown]
  - Gait disturbance [Recovered/Resolved]
  - Fatigue [Not Recovered/Not Resolved]
  - Vision blurred [Recovered/Resolved]
